FAERS Safety Report 8015579-0 (Version None)
Quarter: 2011Q4

REPORT INFORMATION
  Report Type: 
  Country: None (occurrence: None)
  Receive Date: 20111230
  Receipt Date: 20111221
  Transmission Date: 20120403
  Serious: Yes (Other)
  Sender: FDA-Public Use
  Company Number: US-US-EMD SERONO, INC.-7103331

PATIENT
  Sex: Female

DRUGS (2)
  1. REBIF [Suspect]
     Indication: MULTIPLE SCLEROSIS
     Dates: start: 20100920, end: 20111130
  2. NEURONTIN [Concomitant]
     Indication: PAIN

REACTIONS (5)
  - DEPRESSION [None]
  - SWELLING [None]
  - SUICIDAL IDEATION [None]
  - HEMIPLEGIA [None]
  - ABNORMAL BEHAVIOUR [None]
